FAERS Safety Report 4679764-8 (Version None)
Quarter: 2005Q2

REPORT INFORMATION
  Report Type: 
  Country: None (occurrence: None)
  Receive Date: 20050602
  Receipt Date: 20041108
  Transmission Date: 20051028
  Serious: Yes (Disabling, Other)
  Sender: FDA-Public Use
  Company Number: US-NOVOPROD-240426

PATIENT
  Age: 51 Year
  Sex: Female
  Weight: 81 kg

DRUGS (6)
  1. NOVOSEVEN [Suspect]
     Indication: FACTOR XI DEFICIENCY
     Dosage: 90 UG/KG, SINGLE
     Route: 042
     Dates: start: 20041028, end: 20041028
  2. NOVOSEVEN [Suspect]
     Dosage: 50 UG/KG/HR CONTINUOUS INFUSION
     Route: 042
     Dates: start: 20041028, end: 20041031
  3. LEVOXYL [Concomitant]
     Indication: ILL-DEFINED DISORDER
  4. EFFEXOR [Concomitant]
     Indication: ILL-DEFINED DISORDER
  5. SINGULAIR ^DIECKMANN^ [Concomitant]
     Indication: ILL-DEFINED DISORDER
  6. HORMONE REPLACEMENT THERAPY [Concomitant]
     Indication: HORMONE REPLACEMENT THERAPY

REACTIONS (1)
  - CEREBROVASCULAR ACCIDENT [None]
